FAERS Safety Report 11365292 (Version 2)
Quarter: 2015Q3

REPORT INFORMATION
  Report Type: Report from Study
  Country: KR (occurrence: KR)
  Receive Date: 20150811
  Receipt Date: 20150911
  Transmission Date: 20151125
  Serious: Yes (Hospitalization)
  Sender: FDA-Public Use
  Company Number: KR-ABBVIE-15K-286-1440238-00

PATIENT
  Age: 48 Year
  Sex: Female
  Weight: 48 kg

DRUGS (31)
  1. PANTOLOC [Concomitant]
     Active Substance: PANTOPRAZOLE SODIUM
     Indication: GASTRITIS PROPHYLAXIS
     Dosage: DAILY
     Route: 048
     Dates: start: 20150622, end: 20150729
  2. NEBISTOL [Concomitant]
     Route: 048
     Dates: start: 20150803
  3. ADALAT [Concomitant]
     Active Substance: NIFEDIPINE
     Indication: HYPERTENSION
     Route: 048
     Dates: start: 20150802, end: 20150802
  4. XPAIN ER SEMI TAB [Concomitant]
     Indication: PAIN PROPHYLAXIS
     Route: 048
     Dates: start: 20150804
  5. LANSTON [Concomitant]
     Active Substance: LANSOPRAZOLE
     Indication: GASTRITIS PROPHYLAXIS
     Route: 048
     Dates: start: 20150730
  6. SIBELIUM [Concomitant]
     Active Substance: FLUNARIZINE
     Indication: HEADACHE
     Route: 048
     Dates: start: 20150731
  7. PENIRAMIN [Concomitant]
     Indication: INFECTION PROPHYLAXIS
     Route: 048
     Dates: start: 20150807, end: 20150807
  8. OSMETONE [Concomitant]
     Indication: RHEUMATOID ARTHRITIS
     Dosage: DAILY
     Route: 048
     Dates: start: 20150427
  9. STOGAR [Concomitant]
     Indication: GASTRITIS PROPHYLAXIS
     Dosage: DAILY
     Route: 048
     Dates: start: 20150427, end: 20150729
  10. NEBILET [Concomitant]
     Active Substance: NEBIVOLOL
     Indication: HYPERTENSION
     Dosage: DAILY
     Route: 048
  11. EVISTA [Concomitant]
     Active Substance: RALOXIFENE HYDROCHLORIDE
     Indication: OSTEOPOROSIS
     Dosage: DAILY
     Route: 048
     Dates: start: 20150730
  12. TYRENOL [Concomitant]
     Route: 048
     Dates: start: 20150806, end: 20150806
  13. VALENTAC [Concomitant]
     Indication: RHEUMATOID ARTHRITIS
     Dosage: 75 MG/A
     Route: 030
     Dates: start: 20150803, end: 20150803
  14. PENIRAMIN [Concomitant]
     Indication: INFECTION PROPHYLAXIS
     Route: 042
     Dates: start: 20150801, end: 20150801
  15. ENTELON [Concomitant]
     Indication: PERIPHERAL VENOUS DISEASE
     Dosage: DAILY
     Route: 048
     Dates: start: 20150622
  16. XPAIN ER SEMI TAB [Concomitant]
     Indication: RHEUMATOID ARTHRITIS
     Dosage: DAILY
     Route: 048
     Dates: start: 20150526, end: 20150803
  17. TYRENOL [Concomitant]
     Indication: PAIN PROPHYLAXIS
     Route: 048
     Dates: start: 20150731
  18. ULTRACET [Concomitant]
     Active Substance: ACETAMINOPHEN\TRAMADOL HYDROCHLORIDE
     Indication: PAIN PROPHYLAXIS
     Route: 048
     Dates: start: 20150808, end: 20150808
  19. HUMIRA [Suspect]
     Active Substance: ADALIMUMAB
     Indication: RHEUMATOID ARTHRITIS
     Route: 058
     Dates: start: 20141028
  20. NEBISTOL [Concomitant]
     Indication: HYPERTENSION
     Route: 048
     Dates: start: 20150730
  21. NORVASC [Concomitant]
     Active Substance: AMLODIPINE BESYLATE
     Indication: HYPERTENSION
     Route: 048
     Dates: start: 20150731, end: 20150731
  22. DICHLOZID [Concomitant]
     Indication: HYPERTENSION
     Route: 048
     Dates: start: 20150731, end: 20150731
  23. DICHLOZID [Concomitant]
     Route: 048
     Dates: start: 20150731, end: 20150802
  24. NORVASC V [Concomitant]
     Indication: HYPERTENSION
     Dosage: 5/160 MG
     Route: 048
     Dates: start: 20150803
  25. DIOVAN HCT [Concomitant]
     Active Substance: HYDROCHLOROTHIAZIDE\VALSARTAN
     Indication: HYPERTENSION
     Route: 048
     Dates: start: 20150803, end: 20150803
  26. VALENTAC [Concomitant]
     Route: 030
     Dates: start: 20150807, end: 20150807
  27. MESEXIN [Concomitant]
     Indication: INFECTION PROPHYLAXIS
     Route: 048
     Dates: start: 20150804, end: 20150812
  28. VASPIN ER TAB [Concomitant]
     Indication: HYPERTENSION
     Dosage: DAILY
     Dates: end: 20150730
  29. PENIRAMIN [Concomitant]
     Route: 042
     Dates: start: 20150803, end: 20150803
  30. LIVALO [Concomitant]
     Active Substance: PITAVASTATIN CALCIUM
     Indication: HYPERCHOLESTEROLAEMIA
     Route: 048
     Dates: start: 20150730
  31. NORVASC [Concomitant]
     Active Substance: AMLODIPINE BESYLATE
     Route: 048
     Dates: start: 20150731, end: 20150802

REACTIONS (4)
  - Gastric mucosa erythema [Unknown]
  - Gastritis [Unknown]
  - Oedema [Recovered/Resolved]
  - Headache [Recovered/Resolved]

NARRATIVE: CASE EVENT DATE: 201507
